FAERS Safety Report 9524646 (Version 1)
Quarter: 2013Q1

REPORT INFORMATION
  Report Type: Spontaneous
  Country: US (occurrence: None)
  Receive Date: 20130305
  Receipt Date: 20130305
  Transmission Date: 20140127
  Serious: Yes (Other)
  Sender: FDA-Public Use
  Company Number: 163-21880-12022283

PATIENT
  Age: 68 Year
  Sex: Male
  Weight: 85.28 kg

DRUGS (12)
  1. REVLIMID (LENALIDOMIDE) (25 MILLIGRAM, CAPSULES) [Suspect]
     Indication: PLASMA CELL MYELOMA
     Route: 048
     Dates: start: 200801
  2. DECADRON (DEXAMETHASONE) [Concomitant]
  3. ASPIRIN (ACETYLSALICYLIC ACID) [Concomitant]
  4. CRESTOR (ROSUVASTATIN) [Concomitant]
  5. DILTIAZEM HCL (DILTIAZEM HYDROCHLORIDE) [Concomitant]
  6. LISINOPRIL [Concomitant]
  7. PANTOPRAZOLE [Concomitant]
  8. PLAVIX (CLOPIDOGREL SULFATE) [Concomitant]
  9. TEMAZEPAM [Concomitant]
  10. TURMERIC [Concomitant]
  11. CURCUMIN [Concomitant]
  12. ALBUTEROL (SALBUTAMOL) [Concomitant]

REACTIONS (1)
  - Tooth infection [None]
